FAERS Safety Report 10061684 (Version 2)
Quarter: 2014Q2

REPORT INFORMATION
  Report Type: Spontaneous
  Country: DE (occurrence: None)
  Receive Date: 20140403
  Receipt Date: 20140416
  Transmission Date: 20141212
  Serious: Yes (Hospitalization, Other)
  Sender: FDA-Public Use
  Company Number: 2014-19271

PATIENT
  Age: 79 Year
  Sex: Female

DRUGS (3)
  1. EYLEA [Suspect]
     Indication: AGE-RELATED MACULAR DEGENERATION
     Dates: start: 20130603, end: 20130603
  2. PREDNISOLONE (PREDNISOLONE) [Concomitant]
  3. FOLIC ACID (FOLIC ACID) [Concomitant]

REACTIONS (2)
  - Atrial fibrillation [None]
  - Embolic cerebral infarction [None]
